FAERS Safety Report 8793466 (Version 2)
Quarter: 2012Q4

REPORT INFORMATION
  Report Type: 
  Country: US (occurrence: US)
  Receive Date: 20120918
  Receipt Date: 20121122
  Transmission Date: 20130627
  Serious: Yes (Death)
  Sender: FDA-Public Use
  Company Number: US-ROCHE-1127486

PATIENT
  Age: 54 Year
  Sex: Male

DRUGS (4)
  1. AVASTIN [Suspect]
     Indication: OESOPHAGEAL CARCINOMA
     Route: 042
     Dates: start: 20070226, end: 20070409
  2. AVASTIN [Suspect]
     Indication: OESOPHAGEAL CARCINOMA
  3. COUMADIN [Concomitant]
  4. LOVENOX [Concomitant]

REACTIONS (2)
  - Death [Fatal]
  - Deep vein thrombosis [Unknown]
